FAERS Safety Report 8024765-5 (Version None)
Quarter: 2012Q1

REPORT INFORMATION
  Report Type: 
  Country: None (occurrence: None)
  Receive Date: 20120103
  Receipt Date: 20111219
  Transmission Date: 20120608
  Serious: Yes (Other)
  Sender: FDA-Public Use
  Company Number: JPI-P-000457

PATIENT
  Age: 50 Year
  Sex: Female

DRUGS (6)
  1. XYREM [Suspect]
     Indication: PRODUCT USED FOR UNKNOWN INDICATION
     Dosage: 6;7;7.5 GM (3;3.5;3.75  GM, 2 IN 1 D), ORAL
     Route: 048
     Dates: start: 20071018
  2. XYREM [Suspect]
     Indication: PRODUCT USED FOR UNKNOWN INDICATION
     Dosage: 6;7;7.5 GM (3;3.5;3.75  GM, 2 IN 1 D), ORAL
     Route: 048
     Dates: start: 20061109, end: 20070627
  3. XYREM [Suspect]
     Indication: PRODUCT USED FOR UNKNOWN INDICATION
     Dosage: 6;7;7.5 GM (3;3.5;3.75  GM, 2 IN 1 D), ORAL
     Route: 048
     Dates: start: 20060216, end: 20061108
  4. XYREM [Suspect]
     Indication: PRODUCT USED FOR UNKNOWN INDICATION
     Dosage: 6;7;7.5 GM (3;3.5;3.75  GM, 2 IN 1 D), ORAL
     Route: 048
     Dates: start: 20070628, end: 20071017
  5. CLOMIPRAMINE HYDROCHLORIDE (TABLETS) [Concomitant]
  6. MODAFINIL (TABLETS) [Concomitant]

REACTIONS (11)
  - FEELING DRUNK [None]
  - WRIST FRACTURE [None]
  - CATAPLEXY [None]
  - FATIGUE [None]
  - SPINAL COMPRESSION FRACTURE [None]
  - PARAESTHESIA [None]
  - SOMNOLENCE [None]
  - PARAESTHESIA ORAL [None]
  - NAUSEA [None]
  - HEADACHE [None]
  - FALL [None]
